FAERS Safety Report 16841133 (Version 1)
Quarter: 2019Q3

REPORT INFORMATION
  Report Type: Spontaneous
  Country: US (occurrence: US)
  Receive Date: 20190923
  Receipt Date: 20190923
  Transmission Date: 20191005
  Serious: No
  Sender: FDA-Public Use
  Company Number: US-SA-2019SA260112

PATIENT
  Age: 52 Year
  Sex: Female

DRUGS (1)
  1. PRALUENT [Suspect]
     Active Substance: ALIROCUMAB
     Indication: BLOOD CHOLESTEROL INCREASED
     Dosage: 75 MG, QOW
     Dates: start: 201908

REACTIONS (7)
  - Hypersensitivity [Unknown]
  - Acrochordon [Unknown]
  - Erythema [Unknown]
  - High density lipoprotein increased [Unknown]
  - Capillary fragility [Unknown]
  - Low density lipoprotein increased [Unknown]
  - Haematoma [Unknown]
